FAERS Safety Report 16973973 (Version 1)
Quarter: 2019Q4

REPORT INFORMATION
  Report Type: Spontaneous
  Country: US (occurrence: US)
  Receive Date: 20191030
  Receipt Date: 20191030
  Transmission Date: 20200122
  Serious: Yes (Other)
  Sender: FDA-Public Use
  Company Number: US-PFIZER INC-2019468553

PATIENT
  Age: 55 Year
  Sex: Female
  Weight: 88.9 kg

DRUGS (1)
  1. ZYVOX [Suspect]
     Active Substance: LINEZOLID
     Indication: SUBCUTANEOUS ABSCESS
     Dosage: 600 MG, 1X/DAY
     Dates: start: 20191025, end: 20191025

REACTIONS (2)
  - Nausea [Recovered/Resolved]
  - Decreased appetite [Unknown]

NARRATIVE: CASE EVENT DATE: 2019
